FAERS Safety Report 10480533 (Version 1)
Quarter: 2014Q3

REPORT INFORMATION
  Report Type: Spontaneous
  Country: US (occurrence: None)
  Receive Date: 20140926
  Receipt Date: 20140926
  Transmission Date: 20150326
  Serious: No
  Sender: FDA-Public Use
  Company Number: None

PATIENT
  Age: 60 Year
  Sex: Female
  Weight: 131.54 kg

DRUGS (1)
  1. ONGLYZA [Suspect]
     Active Substance: SAXAGLIPTIN HYDROCHLORIDE
     Dosage: 1 ONCE DAILY TAKEN BY MOUTH
     Route: 048

REACTIONS (3)
  - Condition aggravated [None]
  - Drug ineffective [None]
  - Cardiac failure congestive [None]

NARRATIVE: CASE EVENT DATE: 20140920
